FAERS Safety Report 9452335 (Version 1)
Quarter: 2013Q3

REPORT INFORMATION
  Report Type: Spontaneous
  Country: US (occurrence: None)
  Receive Date: 20130808
  Receipt Date: 20130808
  Transmission Date: 20140515
  Serious: Yes (Other)
  Sender: FDA-Public Use
  Company Number: None

PATIENT
  Age: 59 Year
  Sex: Female
  Weight: 63.96 kg

DRUGS (1)
  1. ATORVASTATIN [Suspect]
     Indication: BLOOD CHOLESTEROL INCREASED
     Dosage: 1/2 ONCE DAILY TAKEN BY MOUTH.
     Route: 048
     Dates: start: 20130730, end: 20130802

REACTIONS (8)
  - Flank pain [None]
  - Back pain [None]
  - Discomfort [None]
  - Insomnia [None]
  - Tendon rupture [None]
  - Hypoaesthesia [None]
  - Hyperaesthesia [None]
  - Skin discolouration [None]
